FAERS Safety Report 14632314 (Version 1)
Quarter: 2018Q1

REPORT INFORMATION
  Report Type: Spontaneous
  Country: KR (occurrence: KR)
  Receive Date: 20180313
  Receipt Date: 20180313
  Transmission Date: 20180509
  Serious: Yes (Other)
  Sender: FDA-Public Use
  Company Number: KR-PURDUE-GBR-2018-0054041

PATIENT
  Sex: Male

DRUGS (1)
  1. TARGIN [Suspect]
     Active Substance: NALOXONE HYDROCHLORIDE\OXYCODONE HYDROCHLORIDE
     Indication: PROCEDURAL PAIN
     Dosage: STRENGTH 5/2.5 MG
     Route: 065

REACTIONS (1)
  - Angina pectoris [Not Recovered/Not Resolved]
